FAERS Safety Report 7818954-X (Version None)
Quarter: 2011Q4

REPORT INFORMATION
  Report Type: 
  Country: None (occurrence: None)
  Receive Date: 20111017
  Receipt Date: 20111017
  Transmission Date: 20120403
  Serious: No
  Sender: FDA-Public Use
  Company Number: None

PATIENT
  Sex: Female

DRUGS (1)
  1. ENBREL [Suspect]
     Indication: RHEUMATOID ARTHRITIS
     Dosage: 50MG ONCE WEEKLY SUBCUTANEOUSLY
     Route: 058
     Dates: start: 20110911, end: 20111001

REACTIONS (3)
  - BLISTER [None]
  - DEPRESSION [None]
  - PRURITUS [None]
